FAERS Safety Report 11698100 (Version 1)
Quarter: 2015Q4

REPORT INFORMATION
  Report Type: Spontaneous
  Country: IN (occurrence: IN)
  Receive Date: 20151104
  Receipt Date: 20151104
  Transmission Date: 20160304
  Serious: Yes (Death)
  Sender: FDA-Public Use
  Company Number: IN-FRESENIUS KABI-FK201505522

PATIENT
  Age: 10 Year
  Sex: Male

DRUGS (1)
  1. VALPROATE [Suspect]
     Active Substance: VALPROIC ACID
     Indication: DYSTONIA
     Route: 065

REACTIONS (5)
  - Renal failure [Not Recovered/Not Resolved]
  - Off label use [Fatal]
  - Death [Fatal]
  - Myoglobinuria [Not Recovered/Not Resolved]
  - Somnolence [Not Recovered/Not Resolved]
